FAERS Safety Report 6532076-X (Version None)
Quarter: 2010Q1

REPORT INFORMATION
  Report Type: 
  Country: None (occurrence: None)
  Receive Date: 20100108
  Receipt Date: 20100107
  Transmission Date: 20100710
  Serious: Yes (Death, Life-Threatening)
  Sender: FDA-Public Use
  Company Number: GXKR2010DE00482

PATIENT
  Age: 61 Year
  Sex: Male
  Weight: 70 kg

DRUGS (27)
  1. ACETYLSALICYLIC ACID SRT [Suspect]
     Dosage: 100 MG, UNK
     Route: 048
     Dates: start: 20091020, end: 20091028
  2. SIMVASTATIN (NGX) [Suspect]
     Dosage: 20 MG, UNK
     Route: 048
     Dates: start: 20091025, end: 20091027
  3. ZOPICLONE (NGX) [Suspect]
     Dosage: 7.5 MG, UNK
     Route: 048
     Dates: start: 20091020, end: 20091026
  4. FLUNITRAZEPAM (NGX) [Suspect]
     Dosage: UNK
     Route: 065
     Dates: start: 20091028
  5. FUROSEMIDE (NGX) [Suspect]
     Dosage: 20 MG, TID
     Route: 042
     Dates: start: 20091028
  6. ARIXTRA [Suspect]
     Dosage: 2.5 MG, UNK
     Route: 058
     Dates: start: 20091020, end: 20091028
  7. LANSOPRAZOLE [Suspect]
     Dosage: 15 MG, UNK
     Route: 048
     Dates: start: 20091020, end: 20091028
  8. FINLEPSIN - SLOW RELEASE [Suspect]
     Dosage: 200 MG, TID
     Route: 048
     Dates: start: 20091020, end: 20091028
  9. METOPROLOL SUCCINATE [Suspect]
     Dosage: 47.5 MG AND 23.25 MG
     Route: 048
     Dates: start: 20091020, end: 20091024
  10. LORAZEPAM [Suspect]
     Dosage: 1 MG, QD
     Route: 048
     Dates: start: 20091020, end: 20091026
  11. LORAZEPAM [Suspect]
     Dosage: 1 MG, BID
     Route: 048
     Dates: start: 20091027
  12. DELIX [Suspect]
     Dosage: 2.5 MG, UNK
     Route: 048
     Dates: start: 20091021, end: 20091024
  13. EUNERPAN [Suspect]
     Dosage: UNK
     Route: 065
     Dates: start: 20091020, end: 20091027
  14. HAEMITON ^ANKERPHARM^ [Suspect]
     Dosage: 0.075 MG, BID
     Route: 048
     Dates: start: 20091020, end: 20091024
  15. TORSEMIDE [Suspect]
     Dosage: 10 MG, TID
     Route: 048
     Dates: start: 20091020
  16. TORSEMIDE [Suspect]
     Dosage: 10 MG, BID
     Route: 048
     Dates: start: 20091021, end: 20091022
  17. TORSEMIDE [Suspect]
     Dosage: 10 MG, UNK
     Route: 048
     Dates: start: 20091023, end: 20091026
  18. TORSEMIDE [Suspect]
     Dosage: 10 MG, TID
     Route: 048
     Dates: start: 20091027
  19. NOREPINEPHRINE BITARTRATE [Suspect]
     Dosage: 10 MG/ 50 ML NACL 0.9 %
     Dates: start: 20091025
  20. NOREPINEPHRINE BITARTRATE [Suspect]
     Dosage: 10 MG/ 50 ML NACL 0.9 %
     Dates: start: 20091028
  21. ZIENAM [Suspect]
     Dosage: 1 G, TID
     Route: 065
     Dates: start: 20091028
  22. PIPERACILLIN [Suspect]
     Dosage: 1 G, TID
     Dates: start: 20091025, end: 20091027
  23. BERLINSULIN H [Concomitant]
     Dosage: 10 8 10 10 10 IE
     Route: 058
     Dates: start: 20091020
  24. BERLINSULIN H [Concomitant]
     Dosage: 6 6 6 4 IE
     Dates: start: 20091021, end: 20091025
  25. BERLINSULIN H [Concomitant]
     Dosage: 10 16 14 10 IE
     Dates: start: 20091027, end: 20091028
  26. NAC ^ALIUD PHARMA^ [Concomitant]
     Dosage: UNK
     Route: 048
     Dates: start: 20091020, end: 20091028
  27. KALINOR-BRAUSETABLETTEN [Concomitant]
     Dosage: UNK
     Route: 048
     Dates: start: 20091024

REACTIONS (3)
  - RENAL FAILURE ACUTE [None]
  - RHABDOMYOLYSIS [None]
  - URINE COLOUR ABNORMAL [None]
